FAERS Safety Report 6427543-3 (Version None)
Quarter: 2009Q4

REPORT INFORMATION
  Report Type: 
  Country: None (occurrence: None)
  Receive Date: 20091104
  Receipt Date: 20091027
  Transmission Date: 20100525
  Serious: Yes (Hospitalization)
  Sender: FDA-Public Use
  Company Number: ES-ABBOTT-09P-144-0605206-00

PATIENT
  Age: 58 Year
  Sex: Male

DRUGS (8)
  1. DEPAKENE [Suspect]
     Indication: SELF INJURIOUS BEHAVIOUR
     Route: 048
     Dates: start: 20080101, end: 20090705
  2. DEPAKENE [Suspect]
     Route: 048
     Dates: start: 20090705, end: 20090705
  3. DEPAKENE [Suspect]
  4. MIRTAZAPINE [Suspect]
     Indication: OBSESSIVE-COMPULSIVE DISORDER
     Route: 048
     Dates: start: 20080101, end: 20090705
  5. ETUMINA [Suspect]
     Indication: OBSESSIVE-COMPULSIVE DISORDER
     Route: 048
     Dates: start: 20080101, end: 20090705
  6. RIVOTRIL [Suspect]
     Indication: OBSESSIVE-COMPULSIVE DISORDER
     Route: 048
     Dates: start: 20080101, end: 20090705
  7. ZYPREXA [Suspect]
     Indication: OBSESSIVE-COMPULSIVE DISORDER
     Route: 048
     Dates: start: 20080101, end: 20090705
  8. ENALAPRIL MALEATE [Concomitant]
     Indication: HYPERTENSION
     Route: 048

REACTIONS (9)
  - ANAEMIA [None]
  - DRUG LEVEL ABOVE THERAPEUTIC [None]
  - ENCEPHALOPATHY [None]
  - HYPOCALCAEMIA [None]
  - HYPOMAGNESAEMIA [None]
  - INTENTIONAL OVERDOSE [None]
  - PANCYTOPENIA [None]
  - SUICIDE ATTEMPT [None]
  - THROMBOCYTOPENIA [None]
